FAERS Safety Report 8904987 (Version 2)
Quarter: 2013Q1

REPORT INFORMATION
  Report Type: Spontaneous
  Country: US (occurrence: US)
  Receive Date: 20121111
  Receipt Date: 20130320
  Transmission Date: 20140127
  Serious: No
  Sender: FDA-Public Use
  Company Number: US-ASTRAZENECA-2009SE07073

PATIENT
  Age: 87 Year
  Sex: Female

DRUGS (2)
  1. SYMBICORT PMDI [Suspect]
     Route: 055
  2. CRESTOR [Suspect]
     Route: 048

REACTIONS (2)
  - Malaise [Unknown]
  - Dysphonia [Unknown]
